FAERS Safety Report 14348613 (Version 1)
Quarter: 2018Q1

REPORT INFORMATION
  Report Type: Spontaneous
  Country: US (occurrence: US)
  Receive Date: 20180103
  Receipt Date: 20180103
  Transmission Date: 20180509
  Serious: Yes (Life-Threatening, Hospitalization, Other)
  Sender: FDA-Public Use
  Company Number: US-BAXTER-2017BAX044997

PATIENT
  Age: 63 Year
  Sex: Female

DRUGS (3)
  1. PSEUDOEPHEDRINE-FEXOFENADINE [Suspect]
     Active Substance: FEXOFENADINE\PSEUDOEPHEDRINE
     Indication: NASAL DECONGESTION THERAPY
     Dosage: DAILY
     Route: 065
  2. METOPROLOL TARTRATE INJECTION, USP [Suspect]
     Active Substance: METOPROLOL TARTRATE
     Indication: ATRIAL FIBRILLATION
     Route: 042
  3. METOPROLOL. [Suspect]
     Active Substance: METOPROLOL
     Indication: ATRIAL FIBRILLATION
     Route: 048

REACTIONS (3)
  - Drug interaction [Unknown]
  - Arteriospasm coronary [Recovered/Resolved]
  - Acute myocardial infarction [Unknown]
